FAERS Safety Report 11355301 (Version 3)
Quarter: 2015Q4

REPORT INFORMATION
  Report Type: Spontaneous
  Country: US (occurrence: US)
  Receive Date: 20150807
  Receipt Date: 20151026
  Transmission Date: 20160304
  Serious: Yes (Hospitalization)
  Sender: FDA-Public Use
  Company Number: US-PFIZER INC-2014297884

PATIENT
  Sex: Female
  Weight: 62 kg

DRUGS (4)
  1. ALPRAZOLAM. [Suspect]
     Active Substance: ALPRAZOLAM
     Dosage: 0.25 MG, UNK
  2. ZYPREXA [Suspect]
     Active Substance: OLANZAPINE
     Indication: BIPOLAR DISORDER
  3. HYDROCHLOROTHIAZIDE. [Suspect]
     Active Substance: HYDROCHLOROTHIAZIDE
     Dosage: 25 MG, UNK
  4. ZYPREXA [Suspect]
     Active Substance: OLANZAPINE
     Indication: SCHIZOPHRENIA
     Dosage: UNK
     Dates: start: 1999

REACTIONS (10)
  - Gait disturbance [Unknown]
  - Asthenia [Unknown]
  - Dizziness [Unknown]
  - General physical health deterioration [Unknown]
  - Feeling abnormal [Unknown]
  - Hypertension [Unknown]
  - Dysuria [Unknown]
  - Amenorrhoea [Unknown]
  - Activities of daily living impaired [Unknown]
  - Vomiting [Unknown]
